FAERS Safety Report 15883142 (Version 1)
Quarter: 2019Q1

REPORT INFORMATION
  Report Type: Spontaneous
  Country: US (occurrence: US)
  Receive Date: 20190129
  Receipt Date: 20190129
  Transmission Date: 20190417
  Serious: No
  Sender: FDA-Public Use
  Company Number: US-HTU-2018US017637

PATIENT
  Sex: Female

DRUGS (2)
  1. VALCHLOR [Suspect]
     Active Substance: MECHLORETHAMINE
     Indication: MYCOSIS FUNGOIDES
     Dosage: UNK
     Route: 061
     Dates: start: 20180911
  2. VALCHLOR [Suspect]
     Active Substance: MECHLORETHAMINE
     Dosage: THIN FILM TO AFFECTED SKIN, DAILY
     Route: 061

REACTIONS (7)
  - Pruritus [Unknown]
  - Skin discolouration [Unknown]
  - Skin reaction [Unknown]
  - Tremor [Unknown]
  - Skin irritation [Unknown]
  - Erythema [Unknown]
  - Burning sensation [Unknown]
